FAERS Safety Report 6827077-8 (Version None)
Quarter: 2010Q3

REPORT INFORMATION
  Report Type: 
  Country: None (occurrence: None)
  Receive Date: 20100709
  Receipt Date: 20100630
  Transmission Date: 20110219
  Serious: Yes (Other)
  Sender: FDA-Public Use
  Company Number: US-JNJFOC-20100701039

PATIENT
  Age: 48 Year
  Sex: Female

DRUGS (7)
  1. REMICADE [Suspect]
     Indication: COLITIS ULCERATIVE
     Dosage: SECOND INFUSION
     Route: 042
  2. REMICADE [Suspect]
     Route: 042
  3. ASACOL [Concomitant]
  4. PREDNISONE [Concomitant]
  5. IMODIUM [Concomitant]
  6. FLAGYL [Concomitant]
  7. DOXEPIN HCL [Concomitant]

REACTIONS (2)
  - COAGULOPATHY [None]
  - SKIN DISCOLOURATION [None]
